FAERS Safety Report 8082976-7 (Version None)
Quarter: 2012Q1

REPORT INFORMATION
  Report Type: 
  Country: None (occurrence: None)
  Receive Date: 20120127
  Receipt Date: 20110308
  Transmission Date: 20120608
  Serious: No
  Sender: FDA-Public Use
  Company Number: US-ABBOTT-11P-163-0710388-00

PATIENT
  Age: 49 Year
  Sex: Female

DRUGS (5)
  1. UNKNOWN MEDICATION [Concomitant]
     Indication: HYPERTENSION
  2. HUMIRA [Suspect]
     Indication: CROHN'S DISEASE
     Dates: start: 20101123, end: 20110215
  3. CYMBALTA [Concomitant]
     Indication: ANXIETY
  4. ESTROGENIC SUBSTANCE [Concomitant]
     Indication: HORMONE LEVEL ABNORMAL
     Dosage: PILL
  5. CYMBALTA [Concomitant]
     Indication: DEPRESSION

REACTIONS (3)
  - WRONG TECHNIQUE IN DRUG USAGE PROCESS [None]
  - DRUG DOSE OMISSION [None]
  - CROHN'S DISEASE [None]
